FAERS Safety Report 6737238-4 (Version None)
Quarter: 2010Q2

REPORT INFORMATION
  Report Type: 
  Country: None (occurrence: None)
  Receive Date: 20100524
  Receipt Date: 20100514
  Transmission Date: 20101027
  Serious: No
  Sender: FDA-Public Use
  Company Number: US-BIOGENIDEC-2010BI016509

PATIENT
  Age: 28 Year
  Sex: Male

DRUGS (1)
  1. TYSABRI [Suspect]
     Indication: MULTIPLE SCLEROSIS
     Route: 042
     Dates: start: 20090101

REACTIONS (5)
  - EPISTAXIS [None]
  - GINGIVAL PAIN [None]
  - NASAL SEPTUM DEVIATION [None]
  - SOMNOLENCE [None]
  - TOOTHACHE [None]
